FAERS Safety Report 16631108 (Version 1)
Quarter: 2019Q3

REPORT INFORMATION
  Report Type: Spontaneous
  Country: NL (occurrence: NL)
  Receive Date: 20190725
  Receipt Date: 20190725
  Transmission Date: 20191004
  Serious: Yes (Disabling, Other)
  Sender: FDA-Public Use
  Company Number: NL-ASTRAZENECA-2019SE94094

PATIENT
  Sex: Female

DRUGS (4)
  1. FASENRA [Suspect]
     Active Substance: BENRALIZUMAB
     Indication: ASTHMA
     Dosage: 30.0MG/ML UNKNOWN
     Route: 058
     Dates: start: 20181011, end: 20190523
  2. MEPOLIZUMAB [Concomitant]
     Active Substance: MEPOLIZUMAB
     Indication: ASTHMA
     Route: 058
     Dates: start: 20170126, end: 20180906
  3. FLUTIFORM [Concomitant]
     Active Substance: FLUTICASONE PROPIONATE\FORMOTEROL FUMARATE
     Indication: ASTHMA
  4. SPIRIVA [Concomitant]
     Active Substance: TIOTROPIUM BROMIDE MONOHYDRATE
     Indication: ASTHMA

REACTIONS (4)
  - Pulmonary function test decreased [Unknown]
  - Eosinophil count increased [Unknown]
  - Drug ineffective [Unknown]
  - Asthma [Unknown]
